FAERS Safety Report 6386247-6 (Version None)
Quarter: 2009Q3

REPORT INFORMATION
  Report Type: 
  Country: None (occurrence: None)
  Receive Date: 20090929
  Receipt Date: 20090610
  Transmission Date: 20100115
  Serious: No
  Sender: FDA-Public Use
  Company Number: 284883

PATIENT
  Sex: Male
  Weight: 65 kg

DRUGS (2)
  1. LUCENTIS [Suspect]
     Indication: MACULAR DEGENERATION
     Dosage: 1 MONTH, INTRAVITREAL
  2. DIABETIC MEDICATION NOS (ANTIDIABETIC DRUG NOS) [Concomitant]

REACTIONS (1)
  - PHOTOPSIA [None]
